FAERS Safety Report 10153416 (Version 1)
Quarter: 2014Q2

REPORT INFORMATION
  Report Type: Spontaneous
  Country: US (occurrence: US)
  Receive Date: 20140505
  Receipt Date: 20140505
  Transmission Date: 20141212
  Serious: No
  Sender: FDA-Public Use
  Company Number: US-ASTRAZENECA-2014SE17488

PATIENT
  Age: 25656 Day
  Sex: Male
  Weight: 68 kg

DRUGS (1)
  1. OMEPRAZOLE OTC [Suspect]
     Indication: OESOPHAGITIS
     Route: 048
     Dates: start: 20140303

REACTIONS (2)
  - Dizziness [Not Recovered/Not Resolved]
  - Off label use [Unknown]
